FAERS Safety Report 6595304-0 (Version None)
Quarter: 2010Q1

REPORT INFORMATION
  Report Type: 
  Country: None (occurrence: None)
  Receive Date: 20100219
  Receipt Date: 20100219
  Transmission Date: 20100710
  Serious: Yes (Hospitalization)
  Sender: FDA-Public Use
  Company Number: None

PATIENT
  Age: 24 Year
  Sex: Female

DRUGS (6)
  1. WARFARIN SODIUM [Suspect]
     Indication: PULMONARY EMBOLISM
     Dosage: 7.5 MG DAILY PO
     Route: 048
  2. DEPAKOTE [Concomitant]
  3. ASPIRIN [Concomitant]
  4. SINGULAIR [Concomitant]
  5. TYLENOL W/ CODEINE NO. 3 [Concomitant]
  6. ALBUTEROL [Concomitant]

REACTIONS (2)
  - INTERNATIONAL NORMALISED RATIO INCREASED [None]
  - MENORRHAGIA [None]
